FAERS Safety Report 25396005 (Version 1)
Quarter: 2025Q2

REPORT INFORMATION
  Report Type: Spontaneous
  Country: US (occurrence: US)
  Receive Date: 20250604
  Receipt Date: 20250604
  Transmission Date: 20250716
  Serious: No
  Sender: Haleon PLC
  Company Number: US-HALEON-2244799

PATIENT

DRUGS (1)
  1. FLONASE [Suspect]
     Active Substance: FLUTICASONE PROPIONATE
     Indication: Hypersensitivity

REACTIONS (1)
  - Drug ineffective [Unknown]
